FAERS Safety Report 12683822 (Version 1)
Quarter: 2016Q3

REPORT INFORMATION
  Report Type: Spontaneous
  Country: US (occurrence: None)
  Receive Date: 20160824
  Receipt Date: 20160824
  Transmission Date: 20161109
  Serious: Yes (Other)
  Sender: FDA-Public Use
  Company Number: None

PATIENT
  Age: 35 Year
  Sex: Female
  Weight: 122.47 kg

DRUGS (4)
  1. KLONOPIN [Concomitant]
     Active Substance: CLONAZEPAM
  2. VALPROIC ACID. [Concomitant]
     Active Substance: VALPROIC ACID
  3. CLOZARIL [Concomitant]
     Active Substance: CLOZAPINE
  4. REXULTI [Suspect]
     Active Substance: BREXPIPRAZOLE
     Indication: SCHIZOAFFECTIVE DISORDER
     Route: 048
     Dates: start: 20160501, end: 20160712

REACTIONS (1)
  - Myositis [None]

NARRATIVE: CASE EVENT DATE: 20160712
